FAERS Safety Report 6306386-5 (Version None)
Quarter: 2009Q3

REPORT INFORMATION
  Report Type: 
  Country: None (occurrence: None)
  Receive Date: 20090812
  Receipt Date: 20090805
  Transmission Date: 20100115
  Serious: Yes (Other)
  Sender: FDA-Public Use
  Company Number: CA-ELI_LILLY_AND_COMPANY-CA200908001323

PATIENT
  Sex: Female

DRUGS (4)
  1. HUMALOG [Suspect]
  2. LANTUS [Concomitant]
     Dosage: UNK, UNK
  3. ACETYLSALICYLIC ACID [Concomitant]
     Dosage: 81 MG, DAILY (1/D)
  4. CODEINE [Concomitant]
     Dosage: 30 MG, DAILY (1/D)

REACTIONS (3)
  - CEREBROVASCULAR ACCIDENT [None]
  - MOTOR DYSFUNCTION [None]
  - MUSCULAR WEAKNESS [None]
